FAERS Safety Report 7751514-8 (Version None)
Quarter: 2011Q3

REPORT INFORMATION
  Report Type: 
  Country: None (occurrence: None)
  Receive Date: 20110914
  Receipt Date: 20110907
  Transmission Date: 20111222
  Serious: Yes (Other)
  Sender: FDA-Public Use
  Company Number: PHHY2009CA48284

PATIENT
  Sex: Female

DRUGS (5)
  1. SANDOSTATIN LAR [Suspect]
     Dosage: 30 MG, QMO
     Route: 030
  2. SANDOSTATIN LAR [Suspect]
     Dosage: 30 MG EVERY 4 WEEKS
     Route: 030
  3. SANDOSTATIN LAR [Suspect]
     Dosage: 30 MG EVERY 4 WEEKS
     Route: 030
  4. SANDOSTATIN LAR [Suspect]
     Dosage: 30 MG ONCE MONTHLY
     Route: 030
  5. SANDOSTATIN LAR [Suspect]
     Indication: METASTATIC CARCINOID TUMOUR
     Dosage: 20 MG EVERY 4 WEEKS
     Route: 030
     Dates: start: 20091007

REACTIONS (15)
  - HEADACHE [None]
  - PARAESTHESIA [None]
  - POLYP [None]
  - BLOOD GLUCOSE INCREASED [None]
  - DIARRHOEA [None]
  - INCISION SITE COMPLICATION [None]
  - SKIN IRRITATION [None]
  - BLOOD PRESSURE INCREASED [None]
  - BOWEL MOVEMENT IRREGULARITY [None]
  - ALOPECIA [None]
  - RECTAL HAEMORRHAGE [None]
  - NEOPLASM MALIGNANT [None]
  - ABDOMINAL PAIN [None]
  - NAUSEA [None]
  - FLATULENCE [None]
